FAERS Safety Report 5325914-X (Version None)
Quarter: 2007Q2

REPORT INFORMATION
  Report Type: 
  Country: None (occurrence: None)
  Receive Date: 20070516
  Receipt Date: 20070508
  Transmission Date: 20071010
  Serious: Yes (Hospitalization, Other)
  Sender: FDA-Public Use
  Company Number: PHNU2007DE01726

PATIENT
  Age: 65 Year
  Sex: Female

DRUGS (1)
  1. ZOMETA [Suspect]
     Indication: MULTIPLE MYELOMA
     Dosage: 4 MG, QMO
     Dates: start: 20050101

REACTIONS (21)
  - ANAEMIA [None]
  - BACK PAIN [None]
  - BIOPSY SITE UNSPECIFIED ABNORMAL [None]
  - DENTAL TREATMENT [None]
  - EATING DISORDER [None]
  - EXCESSIVE GRANULATION TISSUE [None]
  - FISTULA [None]
  - FISTULA REPAIR [None]
  - HISTOLOGY ABNORMAL [None]
  - IMPAIRED HEALING [None]
  - MALIGNANT NEOPLASM PROGRESSION [None]
  - NON-HODGKIN'S LYMPHOMA [None]
  - ORAL SURGERY [None]
  - OSTEONECROSIS [None]
  - PAIN IN JAW [None]
  - PLATELET COUNT DECREASED [None]
  - PRIMARY SEQUESTRUM [None]
  - PROTEINURIA [None]
  - RADIOTHERAPY TO BONE [None]
  - SEQUESTRECTOMY [None]
  - TRANSFUSION [None]
